FAERS Safety Report 17929593 (Version 1)
Quarter: 2020Q2

REPORT INFORMATION
  Report Type: Spontaneous
  Country: US (occurrence: US)
  Receive Date: 20200623
  Receipt Date: 20200623
  Transmission Date: 20200714
  Serious: No
  Sender: FDA-Public Use
  Company Number: US-ALLERGAN-1944402US

PATIENT
  Sex: Female

DRUGS (3)
  1. KYBELLA [Suspect]
     Active Substance: DEOXYCHOLIC ACID
     Dosage: 4 ML, SINGLE
     Route: 058
     Dates: start: 20190911, end: 20190911
  2. KYBELLA [Suspect]
     Active Substance: DEOXYCHOLIC ACID
     Dosage: UNK ML, SINGLE
     Route: 058
     Dates: start: 20190620, end: 20190620
  3. KYBELLA [Suspect]
     Active Substance: DEOXYCHOLIC ACID
     Indication: FAT TISSUE INCREASED
     Dosage: UNK
     Dates: start: 20191106, end: 20191106

REACTIONS (3)
  - Drug ineffective [Unknown]
  - Injection site pain [Recovered/Resolved]
  - Patient dissatisfaction with treatment [Unknown]
